APPROVED DRUG PRODUCT: LEVOTHYROXINE SODIUM
Active Ingredient: LEVOTHYROXINE SODIUM
Strength: 0.088MG
Dosage Form/Route: CAPSULE;ORAL
Application: A213256 | Product #001
Applicant: ANI PHARMACEUTICALS INC
Approved: Jan 6, 2021 | RLD: No | RS: No | Type: DISCN